FAERS Safety Report 7310895-X (Version None)
Quarter: 2011Q1

REPORT INFORMATION
  Report Type: 
  Country: None (occurrence: None)
  Receive Date: 20110224
  Receipt Date: 20110217
  Transmission Date: 20110831
  Serious: Yes (Hospitalization)
  Sender: FDA-Public Use
  Company Number: RU-GENZYME-CAMP-1000556

PATIENT
  Sex: Female
  Weight: 51 kg

DRUGS (12)
  1. PYRIDOXINE [Concomitant]
     Indication: MULTIPLE SCLEROSIS
     Dosage: 100 MG, QOD
     Route: 030
     Dates: start: 20100831, end: 20100928
  2. CALCIUM GLUCONATE [Concomitant]
     Indication: MULTIPLE SCLEROSIS
     Dosage: 5 ML, QD
     Dates: start: 20100831, end: 20100928
  3. NICOTINIC ACID [Concomitant]
     Indication: MULTIPLE SCLEROSIS
     Dosage: 0.6 ML, QD
     Route: 058
     Dates: start: 20100831, end: 20100928
  4. CAMPATH [Suspect]
     Indication: MULTIPLE SCLEROSIS
     Dosage: 24 MG, QDX5
     Route: 042
     Dates: start: 20090413, end: 20090417
  5. PYRACETAM [Concomitant]
     Indication: MULTIPLE SCLEROSIS
     Dosage: 1000 MG, QD
     Route: 042
     Dates: start: 20100831, end: 20100928
  6. EMOXIPINUM [Concomitant]
     Indication: MULTIPLE SCLEROSIS
     Dosage: 1 GTT, TID
     Route: 047
     Dates: start: 20100831, end: 20100928
  7. ASCORBIC ACID [Concomitant]
     Indication: MULTIPLE SCLEROSIS
     Dosage: 5 ML, QD
     Route: 042
     Dates: start: 20100831, end: 20100928
  8. RETINALAMINUM [Concomitant]
     Indication: MULTIPLE SCLEROSIS
     Dosage: 1.0 ML, QD
     Route: 058
     Dates: start: 20100831, end: 20100928
  9. CINNARIZINE [Concomitant]
     Indication: PRODUCT USED FOR UNKNOWN INDICATION
     Dosage: 1 TAB, TID
     Dates: start: 20100831, end: 20100928
  10. THIAMINE [Concomitant]
     Indication: MULTIPLE SCLEROSIS
     Dosage: 100 MG, QOD
     Route: 030
     Dates: start: 20100831, end: 20100928
  11. PENTOXIFYLLINE [Concomitant]
     Indication: MULTIPLE SCLEROSIS
     Dosage: 5 ML, QD
     Route: 042
     Dates: start: 20100831, end: 20100928
  12. EMOXIPINUM [Concomitant]
     Dosage: 0.5 ML, QD
     Route: 047
     Dates: start: 20100831, end: 20100928

REACTIONS (1)
  - PULMONARY TUBERCULOSIS [None]
